FAERS Safety Report 7318854-8 (Version None)
Quarter: 2011Q1

REPORT INFORMATION
  Report Type: 
  Country: None (occurrence: None)
  Receive Date: 20110228
  Receipt Date: 20101108
  Transmission Date: 20110831
  Serious: No
  Sender: FDA-Public Use
  Company Number: A0889602A

PATIENT
  Sex: Female

DRUGS (1)
  1. IMITREX [Suspect]
     Route: 065

REACTIONS (4)
  - CHEST PAIN [None]
  - SENSITIVITY OF TEETH [None]
  - THROAT TIGHTNESS [None]
  - HYPOAESTHESIA ORAL [None]
